FAERS Safety Report 21730238 (Version 1)
Quarter: 2022Q4

REPORT INFORMATION
  Report Type: Spontaneous
  Country: US (occurrence: US)
  Receive Date: 20221214
  Receipt Date: 20221214
  Transmission Date: 20230113
  Serious: Yes (Other)
  Sender: FDA-Public Use
  Company Number: US-BRISTOL-MYERS SQUIBB COMPANY-2022-152265

PATIENT
  Age: 70 Year
  Sex: Male
  Weight: 58.5 kg

DRUGS (1)
  1. REVLIMID [Suspect]
     Active Substance: LENALIDOMIDE
     Indication: Mantle cell lymphoma
     Dosage: FREQUENCY: 21D  OF 28 DAYS
     Route: 048
     Dates: end: 20221130

REACTIONS (1)
  - Malignant neoplasm progression [Unknown]
